FAERS Safety Report 8352768-X (Version None)
Quarter: 2012Q2

REPORT INFORMATION
  Report Type: 
  Country: None (occurrence: None)
  Receive Date: 20120511
  Receipt Date: 20120504
  Transmission Date: 20120825
  Serious: Yes (Death, Hospitalization)
  Sender: FDA-Public Use
  Company Number: FR-SANOFI-AVENTIS-2012SA022082

PATIENT
  Age: 80 Year
  Sex: Male

DRUGS (10)
  1. JEVTANA KIT [Suspect]
     Indication: PROSTATE CANCER METASTATIC
     Route: 041
     Dates: start: 20111229, end: 20111229
  2. PREDNISONE TAB [Suspect]
     Indication: PROSTATE CANCER METASTATIC
     Route: 042
     Dates: start: 20120209, end: 20120209
  3. POLARAMINE [Suspect]
     Indication: PREMEDICATION
     Route: 042
     Dates: start: 20120209, end: 20120209
  4. ANTITHROMBOTIC AGENTS [Concomitant]
     Indication: PROPHYLAXIS
  5. JEVTANA KIT [Suspect]
     Route: 041
     Dates: start: 20120209, end: 20120209
  6. JEVTANA KIT [Suspect]
     Route: 041
     Dates: start: 20120119, end: 20120119
  7. ZANTAC [Suspect]
     Indication: PREMEDICATION
     Route: 042
     Dates: start: 20120209, end: 20120209
  8. FILGRASTIM [Concomitant]
     Dates: start: 20120201, end: 20120201
  9. METHYLPREDNISOLONE [Suspect]
     Indication: PREMEDICATION
     Route: 042
     Dates: start: 20120209, end: 20120209
  10. FILGRASTIM [Concomitant]
     Dates: start: 20120101, end: 20120101

REACTIONS (6)
  - ANAEMIA [None]
  - NEUTROPENIA [None]
  - THROMBOCYTOPENIA [None]
  - FEBRILE BONE MARROW APLASIA [None]
  - PYREXIA [None]
  - SEPSIS [None]
